FAERS Safety Report 9299614 (Version 1)
Quarter: 2013Q2

REPORT INFORMATION
  Report Type: Spontaneous
  Country: US (occurrence: US)
  Receive Date: 20130521
  Receipt Date: 20130521
  Transmission Date: 20140414
  Serious: No
  Sender: FDA-Public Use
  Company Number: US-BIOGENIDEC-2013BI039669

PATIENT
  Sex: Female

DRUGS (1)
  1. AVONEX [Suspect]
     Indication: MULTIPLE SCLEROSIS
     Route: 030
     Dates: start: 20101018

REACTIONS (5)
  - Fear of injection [Recovered/Resolved]
  - Chemical injury [Recovered/Resolved]
  - Injury associated with device [Recovered/Resolved]
  - Underdose [Recovered/Resolved]
  - Injection site bruising [Not Recovered/Not Resolved]
